FAERS Safety Report 14301926 (Version 2)
Quarter: 2018Q1

REPORT INFORMATION
  Report Type: Report from Study
  Country: US (occurrence: US)
  Receive Date: 20171219
  Receipt Date: 20180102
  Transmission Date: 20180509
  Serious: Yes (Death, Hospitalization, Other)
  Sender: FDA-Public Use
  Company Number: US-GILEAD-2017-0310875

PATIENT
  Age: 64 Year
  Sex: Male
  Weight: 62.6 kg

DRUGS (11)
  1. RIBAVIRIN. [Suspect]
     Active Substance: RIBAVIRIN
     Dosage: 200 MG, QHS
     Route: 048
     Dates: start: 20171003, end: 20171109
  2. LEDIPASVIR/SOFOSBUVIR [Suspect]
     Active Substance: LEDIPASVIR\SOFOSBUVIR
     Indication: CHRONIC HEPATITIS C
     Dosage: 1 DF, UNK
     Route: 048
     Dates: start: 20171003, end: 20171109
  3. RIBAVIRIN. [Suspect]
     Active Substance: RIBAVIRIN
     Indication: CHRONIC HEPATITIS C
     Dosage: 400 MG, QD (AM)
     Route: 048
     Dates: start: 20171003, end: 20171109
  4. NOVOLOG [Concomitant]
     Active Substance: INSULIN ASPART
  5. LANTUS [Concomitant]
     Active Substance: INSULIN GLARGINE
  6. OMEPRAZOLE. [Concomitant]
     Active Substance: OMEPRAZOLE
  7. BENICAR [Concomitant]
     Active Substance: OLMESARTAN MEDOXOMIL
  8. ATIVAN [Concomitant]
     Active Substance: LORAZEPAM
  9. PRILOSEC [Concomitant]
     Active Substance: OMEPRAZOLE MAGNESIUM
  10. LIPITOR [Concomitant]
     Active Substance: ATORVASTATIN CALCIUM
  11. NORVASC [Concomitant]
     Active Substance: AMLODIPINE BESYLATE

REACTIONS (19)
  - Hypercalcaemia [Recovered/Resolved]
  - Abnormal loss of weight [Unknown]
  - Gait inability [Unknown]
  - Dysphagia [Unknown]
  - Pallor [Unknown]
  - Dehydration [Unknown]
  - Pyrexia [Unknown]
  - Oropharyngeal pain [Unknown]
  - Vomiting [Unknown]
  - Back pain [Unknown]
  - Asthenia [Unknown]
  - Confusional state [Unknown]
  - Constipation [Unknown]
  - Abdominal distension [Unknown]
  - Metabolic acidosis [Unknown]
  - Decreased appetite [Unknown]
  - Death [Fatal]
  - Delirium [Unknown]
  - Lethargy [Unknown]

NARRATIVE: CASE EVENT DATE: 2017
